FAERS Safety Report 8939403 (Version 1)
Quarter: 2012Q4

REPORT INFORMATION
  Report Type: 
  Country: FR (occurrence: FR)
  Receive Date: 20121203
  Receipt Date: 20121203
  Transmission Date: 20130627
  Serious: Yes (Congenital Anomaly, Other)
  Sender: FDA-Public Use
  Company Number: FR-BAYER-2012-122144

PATIENT
  Age: 35 Year
  Sex: Female

DRUGS (2)
  1. CIFLOX [Suspect]
     Indication: URINARY INFECTION
     Dosage: UNK
     Route: 064
     Dates: start: 2012
  2. BACTRIM [Suspect]
     Indication: URINARY INFECTION
     Dosage: UNK
     Route: 064
     Dates: start: 2012

REACTIONS (3)
  - Congenital central nervous system anomaly [None]
  - Anencephaly [None]
  - Abortion induced [None]
